FAERS Safety Report 16136156 (Version 2)
Quarter: 2019Q2

REPORT INFORMATION
  Report Type: Report from Study
  Country: BR (occurrence: BR)
  Receive Date: 20190329
  Receipt Date: 20190409
  Transmission Date: 20190711
  Serious: Yes (Hospitalization, Other)
  Sender: FDA-Public Use
  Company Number: BR-SA-2019SA072777

PATIENT
  Sex: Male
  Weight: 129 kg

DRUGS (6)
  1. METFORMIN [METFORMIN HYDROCHLORIDE] [Concomitant]
     Active Substance: METFORMIN HYDROCHLORIDE
     Indication: DIABETES MELLITUS
     Dosage: 2 DF, QD
     Route: 065
  2. INSULIN GLARGINE [Suspect]
     Active Substance: INSULIN GLARGINE
     Indication: TYPE 2 DIABETES MELLITUS
     Dosage: 170 UNITS IN THE MORNING AND 122 UNITS IN THE NIGHT
     Dates: start: 2007
  3. INSULIN LISPRO [Concomitant]
     Active Substance: INSULIN LISPRO
     Indication: DIABETES MELLITUS
     Dosage: 44 IU, QID, HOWEVER, IT WAS APPLIED ACCORDING TO GLYCEMIC LEVELS AND MAY VARY
     Route: 065
  4. DIAMICRON [Concomitant]
     Active Substance: GLICLAZIDE
     Indication: DIABETES MELLITUS
     Dosage: 2 DF, QD
     Route: 065
  5. FORXIGA [Concomitant]
     Active Substance: DAPAGLIFLOZIN
     Indication: DIABETES MELLITUS
     Dosage: 1 DF, QD
     Route: 065
  6. TRAYENTA [Concomitant]
     Active Substance: LINAGLIPTIN
     Indication: DIABETES MELLITUS
     Dosage: 1 DF, QD
     Route: 065

REACTIONS (11)
  - Hypertension [Unknown]
  - Off label use [Unknown]
  - Spinal disorder [Unknown]
  - Blood glucose increased [Unknown]
  - Gait disturbance [Unknown]
  - Retinopathy [Unknown]
  - Sleep apnoea syndrome [Unknown]
  - Swelling [Unknown]
  - Cardiac disorder [Unknown]
  - Gastric ulcer haemorrhage [Unknown]
  - Muscular weakness [Unknown]

NARRATIVE: CASE EVENT DATE: 201302
